FAERS Safety Report 6012633-X (Version None)
Quarter: 2008Q4

REPORT INFORMATION
  Report Type: 
  Country: None (occurrence: None)
  Receive Date: 20081217
  Receipt Date: 20081203
  Transmission Date: 20090506
  Serious: Yes (Hospitalization)
  Sender: FDA-Public Use
  Company Number: FABR-11706

PATIENT
  Age: 36 Year
  Sex: Male
  Weight: 55 kg

DRUGS (6)
  1. FABRAZYME [Suspect]
     Indication: FABRY'S DISEASE
     Dosage: 55 MG, Q2W, INTRAVENOUS
     Route: 042
     Dates: start: 20001117
  2. CILNIDIPINE (CILNIDIPINE) [Concomitant]
  3. TELMISARTAN [Concomitant]
  4. SPHERICAL ABSORBENT COAL [Concomitant]
  5. HYDROXYZINE HCL [Concomitant]
  6. CARBAMAZEPINE (CARBAMAZEPINE) [Concomitant]

REACTIONS (3)
  - HAEMODIALYSIS [None]
  - RENAL FAILURE CHRONIC [None]
  - RENAL TRANSPLANT [None]
